FAERS Safety Report 5694984-1 (Version None)
Quarter: 2008Q2

REPORT INFORMATION
  Report Type: 
  Country: None (occurrence: None)
  Receive Date: 20080404
  Receipt Date: 20080325
  Transmission Date: 20081010
  Serious: Yes (Hospitalization)
  Sender: FDA-Public Use
  Company Number: US-PFIZER INC-2008000680

PATIENT
  Age: 49 Year
  Sex: Female
  Weight: 72 kg

DRUGS (2)
  1. SUTENT [Suspect]
     Indication: BREAST CANCER
     Route: 048
  2. BEVACIZUMAB [Suspect]
     Indication: BREAST CANCER
     Route: 042

REACTIONS (5)
  - DYSPNOEA [None]
  - HYPOXIA [None]
  - MALIGNANT PLEURAL EFFUSION [None]
  - NEURALGIA [None]
  - OEDEMA [None]
